FAERS Safety Report 5113016-7 (Version None)
Quarter: 2006Q3

REPORT INFORMATION
  Report Type: 
  Country: None (occurrence: None)
  Receive Date: 20060731
  Receipt Date: 20060612
  Transmission Date: 20061208
  Serious: No
  Sender: FDA-Public Use
  Company Number: 2006PV015420

PATIENT
  Age: 43 Year
  Sex: Female

DRUGS (1)
  1. BYETTA [Suspect]
     Indication: DRUG USE FOR UNKNOWN INDICATION
     Dosage: 5 MCG;SC
     Route: 058
     Dates: start: 20060101

REACTIONS (4)
  - DECREASED APPETITE [None]
  - INJECTION SITE EXTRAVASATION [None]
  - NAUSEA [None]
  - WEIGHT DECREASED [None]
